FAERS Safety Report 7670825-8 (Version None)
Quarter: 2011Q3

REPORT INFORMATION
  Report Type: 
  Country: None (occurrence: None)
  Receive Date: 20110809
  Receipt Date: 20110804
  Transmission Date: 20111222
  Serious: Yes (Life-Threatening, Hospitalization)
  Sender: FDA-Public Use
  Company Number: CA-US-EMD SERONO, INC.-7058318

PATIENT
  Sex: Male
  Weight: 21 kg

DRUGS (4)
  1. CORTEF [Concomitant]
     Route: 048
     Dates: start: 19981128
  2. SYNTHROID [Concomitant]
     Indication: BLOOD THYROID STIMULATING HORMONE
     Route: 048
     Dates: start: 19981203
  3. CORTEF [Concomitant]
     Indication: BLOOD CORTICOTROPHIN
     Route: 048
     Dates: start: 19981128
  4. SAIZEN [Suspect]
     Indication: GROWTH HORMONE DEFICIENCY
     Route: 058
     Dates: start: 19980520, end: 20060603

REACTIONS (1)
  - ADRENOCORTICAL INSUFFICIENCY ACUTE [None]
